FAERS Safety Report 6169022-7 (Version None)
Quarter: 2009Q2

REPORT INFORMATION
  Report Type: 
  Country: None (occurrence: None)
  Receive Date: 20090424
  Receipt Date: 20090424
  Transmission Date: 20091009
  Serious: Yes (Hospitalization)
  Sender: FDA-Public Use
  Company Number: None

PATIENT

DRUGS (2)
  1. IFOSFAMIDE [Suspect]
     Dosage: IFOSFAMIDE
     Dates: start: 20080707, end: 20080707
  2. CISPLATIN [Suspect]
     Dosage: CISPLATIN

REACTIONS (4)
  - HYPOKALAEMIA [None]
  - HYPOMAGNESAEMIA [None]
  - INTERNATIONAL NORMALISED RATIO INCREASED [None]
  - THERAPEUTIC AGENT TOXICITY [None]
